FAERS Safety Report 6701749-8 (Version None)
Quarter: 2010Q2

REPORT INFORMATION
  Report Type: 
  Country: None (occurrence: None)
  Receive Date: 20100429
  Receipt Date: 20100420
  Transmission Date: 20101027
  Serious: Yes (Other)
  Sender: FDA-Public Use
  Company Number: PHHY2010AU25387

PATIENT
  Sex: Male

DRUGS (3)
  1. TEGRETOL [Suspect]
     Indication: TRIGEMINAL NEURALGIA
     Route: 048
  2. FOSINOPRIL SODIUM [Concomitant]
  3. PRAVACHOL [Concomitant]

REACTIONS (2)
  - HAEMATURIA [None]
  - POLLAKIURIA [None]
